FAERS Safety Report 20163286 (Version 1)
Quarter: 2021Q4

REPORT INFORMATION
  Report Type: Spontaneous
  Country: CN (occurrence: CN)
  Receive Date: 20211209
  Receipt Date: 20211209
  Transmission Date: 20220303
  Serious: Yes (Hospitalization, Other)
  Sender: FDA-Public Use
  Company Number: CN-ABBVIE-21K-035-4189083-00

PATIENT
  Sex: Male
  Weight: 120 kg

DRUGS (4)
  1. VALPROATE SODIUM [Suspect]
     Active Substance: VALPROATE SODIUM
     Indication: Generalised tonic-clonic seizure
     Dosage: 333.3/145 MG
     Route: 065
  2. GLUTATHIONE [Concomitant]
     Active Substance: GLUTATHIONE
     Indication: Product used for unknown indication
  3. OLANZAPINE [Concomitant]
     Active Substance: OLANZAPINE
     Indication: Product used for unknown indication
  4. ESSENTIALE FORTE [Concomitant]
     Indication: Product used for unknown indication

REACTIONS (11)
  - Cerebral haemorrhage [Unknown]
  - Glycosylated haemoglobin increased [Unknown]
  - Illusion [Not Recovered/Not Resolved]
  - Metabolic syndrome [Unknown]
  - Platelet count decreased [Unknown]
  - Cognitive disorder [Not Recovered/Not Resolved]
  - Blood glucose increased [Unknown]
  - Transaminases increased [Unknown]
  - Granulocyte count decreased [Unknown]
  - White blood cell count decreased [Unknown]
  - Pyrexia [Recovered/Resolved]

NARRATIVE: CASE EVENT DATE: 20190101
